FAERS Safety Report 8481246-2 (Version None)
Quarter: 2012Q3

REPORT INFORMATION
  Report Type: 
  Country: None (occurrence: None)
  Receive Date: 20120702
  Receipt Date: 20120621
  Transmission Date: 20120928
  Serious: No
  Sender: FDA-Public Use
  Company Number: US-JNJFOC-20120408623

PATIENT
  Sex: Male

DRUGS (7)
  1. REMICADE [Suspect]
     Route: 042
     Dates: start: 20120112
  2. PREDNISONE TAB [Concomitant]
     Route: 065
  3. ASACOL [Concomitant]
     Route: 065
     Dates: start: 20120101
  4. FLAGYL [Concomitant]
     Route: 065
     Dates: start: 20120226
  5. REMICADE [Suspect]
     Indication: CROHN'S DISEASE
     Route: 042
  6. ENTOCORT EC [Concomitant]
     Route: 065
  7. CIPROFLOXACIN HYDROCHLORIDE [Concomitant]
     Route: 065
     Dates: start: 20120226

REACTIONS (2)
  - MEMORY IMPAIRMENT [None]
  - DEPRESSION [None]
